FAERS Safety Report 10031957 (Version 2)
Quarter: 2014Q2

REPORT INFORMATION
  Report Type: Spontaneous
  Country: US (occurrence: US)
  Receive Date: 20140324
  Receipt Date: 20140416
  Transmission Date: 20141212
  Serious: No
  Sender: FDA-Public Use
  Company Number: US-UCBSA-114699

PATIENT
  Age: 57 Year
  Sex: Female
  Weight: 72.57 kg

DRUGS (3)
  1. CIMZIA [Suspect]
     Indication: RHEUMATOID ARTHRITIS
     Dosage: INDUCTION AND MAINTENCE DOSE OF 200MG ONCE IN 2 WEEKS
     Dates: start: 201201, end: 201402
  2. TRAMADOL [Concomitant]
     Indication: PAIN
  3. TYLENOL [Concomitant]
     Indication: PAIN

REACTIONS (2)
  - Gastroenteritis [Recovered/Resolved]
  - Urinary tract infection viral [Recovered/Resolved]
